FAERS Safety Report 5588489-6 (Version None)
Quarter: 2008Q1

REPORT INFORMATION
  Report Type: 
  Country: None (occurrence: None)
  Receive Date: 20080111
  Receipt Date: 20080107
  Transmission Date: 20080703
  Serious: Yes (Hospitalization)
  Sender: FDA-Public Use
  Company Number: CN-ROCHE-526309

PATIENT
  Age: 51 Year
  Sex: Male
  Weight: 55 kg

DRUGS (3)
  1. CELLCEPT [Suspect]
     Indication: RENAL TRANSPLANT
     Dosage: 0.5 IN MORNING AND 0.75 MG IN THE EVENING.
     Route: 048
     Dates: start: 20020901
  2. NEORAL-SANDIMMUN [Concomitant]
     Indication: RENAL TRANSPLANT
     Route: 048
     Dates: start: 20020901, end: 20070501
  3. FK 506 [Concomitant]
     Indication: RENAL TRANSPLANT
     Route: 048
     Dates: start: 20070501

REACTIONS (10)
  - ANAEMIA [None]
  - BLOOD CREATININE INCREASED [None]
  - BLOOD UREA INCREASED [None]
  - CARDIAC HYPERTROPHY [None]
  - CHEST DISCOMFORT [None]
  - DIZZINESS [None]
  - FATIGUE [None]
  - NASOPHARYNGITIS [None]
  - PERICARDIAL EFFUSION [None]
  - WHITE BLOOD CELL COUNT DECREASED [None]
